FAERS Safety Report 14540109 (Version 1)
Quarter: 2018Q1

REPORT INFORMATION
  Report Type: Spontaneous
  Country: US (occurrence: US)
  Receive Date: 20180216
  Receipt Date: 20180216
  Transmission Date: 20180509
  Serious: Yes (Other)
  Sender: FDA-Public Use
  Company Number: US-COVIS PHARMA B.V.-2018COV00139

PATIENT
  Age: 18 Year
  Sex: Female
  Weight: 54.42 kg

DRUGS (14)
  1. SYMBICORT [Concomitant]
     Active Substance: BUDESONIDE\FORMOTEROL FUMARATE DIHYDRATE
     Dosage: 160 UNK, UNK
  2. BUDESONIDE. [Concomitant]
     Active Substance: BUDESONIDE
  3. FASENRA [Suspect]
     Active Substance: BENRALIZUMAB
     Indication: ASTHMA
     Route: 058
  4. BUPROPION. [Suspect]
     Active Substance: BUPROPION
  5. UNSPECIFIED MEDICATION [Concomitant]
     Active Substance: UNSPECIFIED INGREDIENT
     Dosage: 10 MG, 1X/DAY
  6. DEPO-PROVERA [Concomitant]
     Active Substance: MEDROXYPROGESTERONE ACETATE
  7. OMEPRAZOLE MAGNESIUM. [Suspect]
     Active Substance: OMEPRAZOLE MAGNESIUM
     Route: 048
  8. CALCIUM+VITAMIN D NOS [Concomitant]
  9. LAMICTAL [Concomitant]
     Active Substance: LAMOTRIGINE
  10. RANITIDINE. [Concomitant]
     Active Substance: RANITIDINE
  11. MONTELUKAST [Suspect]
     Active Substance: MONTELUKAST SODIUM
  12. PREDNISONE. [Concomitant]
     Active Substance: PREDNISONE
     Dosage: 40 MG, UNK
     Dates: start: 20180124
  13. XOPENEX [Concomitant]
     Active Substance: LEVALBUTEROL HYDROCHLORIDE
  14. ACTIVELLA [Concomitant]
     Active Substance: ESTRADIOL\NORETHINDRONE ACETATE

REACTIONS (7)
  - Cytokine storm [Unknown]
  - Feeling hot [Unknown]
  - Tremor [Unknown]
  - Tachycardia [Unknown]
  - Pyrexia [Unknown]
  - Respiratory distress [Unknown]
  - Pain [Unknown]
